FAERS Safety Report 9274836 (Version 2)
Quarter: 2013Q2

REPORT INFORMATION
  Report Type: Spontaneous
  Country: FR (occurrence: None)
  Receive Date: 20130429
  Receipt Date: 20130429
  Transmission Date: 20140414
  Serious: Yes (Hospitalization)
  Sender: FDA-Public Use
  Company Number: 7205947

PATIENT
  Age: 42 Year
  Sex: Female

DRUGS (5)
  1. EUTHYRAL [Suspect]
     Indication: THYROIDECTOMY
     Route: 048
     Dates: start: 201301
  2. XANAX [Concomitant]
  3. IMOVANE (ZOPICLONE) (ZOPICLONE) [Concomitant]
  4. CERIS (TROSPIUM CHLORIDE) [Concomitant]
  5. COLPRONE (MEDROGESTONE) [Concomitant]

REACTIONS (3)
  - Abdominal pain lower [None]
  - Diarrhoea [None]
  - Somnolence [None]
